FAERS Safety Report 25370138 (Version 1)
Quarter: 2025Q2

REPORT INFORMATION
  Report Type: Spontaneous
  Country: US (occurrence: US)
  Receive Date: 20250528
  Receipt Date: 20250528
  Transmission Date: 20250716
  Serious: No
  Sender: PFIZER
  Company Number: US-PFIZER INC-202500109459

PATIENT
  Sex: Male

DRUGS (1)
  1. LORBRENA [Suspect]
     Active Substance: LORLATINIB

REACTIONS (3)
  - Fatigue [Unknown]
  - Pain [Unknown]
  - Nervous system disorder [Unknown]
